FAERS Safety Report 8763262 (Version 2)
Quarter: 2012Q4

REPORT INFORMATION
  Report Type: 
  Country: US (occurrence: US)
  Receive Date: 20120831
  Receipt Date: 20121005
  Transmission Date: 20130627
  Serious: Yes (Other)
  Sender: FDA-Public Use
  Company Number: US-SANOFI-AVENTIS-2012SA060046

PATIENT
  Age: 59 Year
  Sex: Female
  Weight: 47.72 kg

DRUGS (3)
  1. LANTUS [Suspect]
     Indication: TYPE I DIABETES MELLITUS
     Dosage: 10u/6/u
     Route: 058
  2. SOLOSTAR [Suspect]
     Indication: TYPE I DIABETES MELLITUS
  3. HUMALOG [Concomitant]

REACTIONS (1)
  - Renal failure [Not Recovered/Not Resolved]
